FAERS Safety Report 8587470 (Version 2)
Quarter: 2012Q4

REPORT INFORMATION
  Report Type: 
  Country: US (occurrence: US)
  Receive Date: 20120531
  Receipt Date: 20120917
  Transmission Date: 20130627
  Serious: Yes (Hospitalization)
  Sender: FDA-Public Use
  Company Number: US-BAYER-2012-052579

PATIENT
  Age: 43 Year
  Sex: Female
  Weight: 53.52 kg

DRUGS (3)
  1. YAZ [Suspect]
     Indication: CONTRACEPTION
     Dosage: UNK
     Dates: start: 200806, end: 20100605
  2. YASMIN [Suspect]
     Indication: CONTRACEPTION
     Dosage: UNK
     Dates: start: 200605, end: 20070821
  3. ASPIRIN [Concomitant]
     Dosage: 81 mg, UNK
     Dates: start: 20100607

REACTIONS (5)
  - Deep vein thrombosis [None]
  - Pain [None]
  - Pain in extremity [None]
  - Injury [None]
  - Pain [None]
